FAERS Safety Report 5780926-7 (Version None)
Quarter: 2008Q2

REPORT INFORMATION
  Report Type: 
  Country: None (occurrence: None)
  Receive Date: 20080620
  Receipt Date: 20080610
  Transmission Date: 20081010
  Serious: Yes (Hospitalization)
  Sender: FDA-Public Use
  Company Number: GB-PFIZER INC-2008046096

PATIENT
  Sex: Female
  Weight: 5 kg

DRUGS (2)
  1. DEPO-MEDRONE [Suspect]
     Route: 042
  2. SOLU-MEDRONE [Suspect]
     Indication: AUTOIMMUNE DISORDER
     Dosage: DAILY DOSE:10MG
     Route: 042

REACTIONS (3)
  - INCORRECT ROUTE OF DRUG ADMINISTRATION [None]
  - MEDICATION ERROR [None]
  - NO ADVERSE EVENT [None]
